FAERS Safety Report 23631960 (Version 1)
Quarter: 2024Q1

REPORT INFORMATION
  Report Type: Spontaneous
  Country: US (occurrence: None)
  Receive Date: 20240313
  Receipt Date: 20240313
  Transmission Date: 20240410
  Serious: Yes (Disabling)
  Sender: FDA-Public Use
  Company Number: None

PATIENT
  Sex: 0

DRUGS (1)
  1. PAROXETINE [Suspect]
     Active Substance: PAROXETINE

REACTIONS (8)
  - Withdrawal syndrome [None]
  - Brain injury [None]
  - Hypothalamic pituitary adrenal axis suppression [None]
  - Thyroid disorder [None]
  - Metabolic disorder [None]
  - Visual impairment [None]
  - Tinnitus [None]
  - Quality of life decreased [None]
